FAERS Safety Report 4948199-2 (Version None)
Quarter: 2006Q1

REPORT INFORMATION
  Report Type: 
  Country: None (occurrence: None)
  Receive Date: 20060313
  Receipt Date: 20060309
  Transmission Date: 20060701
  Serious: Yes (Other)
  Sender: FDA-Public Use
  Company Number: S06-USA-00709-01

PATIENT
  Age: 75 Year
  Sex: Male

DRUGS (8)
  1. LEXAPRO [Suspect]
     Dosage: 10 MG QD PO
     Route: 048
     Dates: start: 20050101, end: 20050701
  2. LEXAPRO [Suspect]
     Dosage: 5 MG QD PO
     Route: 048
     Dates: start: 20050601, end: 20050101
  3. HUMULIN 70/30 (HUMAN INSULIN NPH/REGULAR) [Concomitant]
  4. ACTOS (PIOGTLITAZONE) [Concomitant]
  5. CRESTOR (ROSUVATATIN) [Concomitant]
  6. ECOTRIN (ACETYLSALICYLIC ACID) [Concomitant]
  7. PLAVIX (CLOPDIDOGREL SULFATE) [Concomitant]
  8. HYDROCHLOROTHIAZIDE [Concomitant]

REACTIONS (1)
  - HYPOGLYCAEMIA [None]
